FAERS Safety Report 4319850-5 (Version None)
Quarter: 2004Q1

REPORT INFORMATION
  Report Type: 
  Country: None (occurrence: None)
  Receive Date: 20040316
  Receipt Date: 20040225
  Transmission Date: 20041129
  Serious: Yes (Other)
  Sender: FDA-Public Use
  Company Number: USA031152249

PATIENT
  Age: 70 Year
  Sex: Female
  Weight: 39 kg

DRUGS (6)
  1. FORTEO [Suspect]
     Indication: OSTEOPOROSIS
     Dosage: 20 UG/DAY
     Dates: start: 20030201
  2. RELAFEN (NABUEMETONE) [Concomitant]
  3. BETAPACE [Concomitant]
  4. MEVACOR [Concomitant]
  5. DILAUDID [Concomitant]
  6. NEURONTIN [Concomitant]

REACTIONS (7)
  - ASTHENIA [None]
  - ASTHMA [None]
  - LIMB INJURY [None]
  - OEDEMA PERIPHERAL [None]
  - PAIN [None]
  - PHARMACEUTICAL PRODUCT COMPLAINT [None]
  - RIB FRACTURE [None]
